FAERS Safety Report 18755339 (Version 3)
Quarter: 2021Q2

REPORT INFORMATION
  Report Type: Spontaneous
  Country: GB (occurrence: GB)
  Receive Date: 20210119
  Receipt Date: 20210521
  Transmission Date: 20210717
  Serious: Yes (Other)
  Sender: FDA-Public Use
  Company Number: GB-NOVOPROD-780384

PATIENT
  Sex: Female

DRUGS (1)
  1. NORDITROPIN [Suspect]
     Active Substance: SOMATROPIN
     Indication: GROWTH HORMONE DEFICIENCY
     Dosage: 0.2 MG, QD(AS DIRECTED, EVERY NIGHT)
     Route: 058
     Dates: start: 2013

REACTIONS (4)
  - Malaise [Unknown]
  - Neoplasm recurrence [Unknown]
  - Pituitary tumour benign [Unknown]
  - Product dose omission issue [Unknown]
